FAERS Safety Report 19378636 (Version 4)
Quarter: 2022Q2

REPORT INFORMATION
  Report Type: Report from Study
  Country: US (occurrence: US)
  Receive Date: 20210606
  Receipt Date: 20220519
  Transmission Date: 20220721
  Serious: No
  Sender: FDA-Public Use
  Company Number: NVSC2021US126293

PATIENT
  Age: 50 Year
  Sex: Male

DRUGS (2)
  1. ENTRESTO [Suspect]
     Active Substance: SACUBITRIL\VALSARTAN
     Indication: Cardiac failure
     Dosage: 1 DOSAGE FORM, BID, (49/51 MG)
     Route: 048
     Dates: start: 20210502
  2. ENTRESTO [Suspect]
     Active Substance: SACUBITRIL\VALSARTAN
     Dosage: 1 DOSAGE FORM, (97/103 MG)
     Route: 048
     Dates: start: 202106

REACTIONS (2)
  - Pollakiuria [Unknown]
  - Weight increased [Unknown]

NARRATIVE: CASE EVENT DATE: 20210502
